FAERS Safety Report 11849961 (Version 1)
Quarter: 2015Q4

REPORT INFORMATION
  Report Type: Spontaneous
  Country: US (occurrence: US)
  Receive Date: 20151218
  Receipt Date: 20151218
  Transmission Date: 20160305
  Serious: No
  Sender: FDA-Public Use
  Company Number: US-WATSON-2015-03501

PATIENT
  Sex: Male

DRUGS (1)
  1. TESTOSTERONE ENANTHATE (WATSON LABORATORIES) [Suspect]
     Active Substance: TESTOSTERONE ENANTHATE
     Indication: PRODUCT USED FOR UNKNOWN INDICATION
     Dosage: 200 MG, UNKNOWN
     Route: 030

REACTIONS (4)
  - Underdose [None]
  - Product deposit [None]
  - Fatigue [Unknown]
  - Intentional product misuse [Unknown]
